FAERS Safety Report 16435882 (Version 3)
Quarter: 2019Q4

REPORT INFORMATION
  Report Type: Report from Study
  Country: US (occurrence: US)
  Receive Date: 20190614
  Receipt Date: 20191009
  Transmission Date: 20200122
  Serious: Yes (Hospitalization, Other)
  Sender: FDA-Public Use
  Company Number: US-BAUSCH-BL-2018-025415

PATIENT
  Age: 56 Year
  Sex: Male

DRUGS (3)
  1. XIFAXAN [Suspect]
     Active Substance: RIFAXIMIN
     Indication: HEPATIC ENCEPHALOPATHY
     Route: 048
     Dates: start: 201711, end: 20180908
  2. XIFAXAN [Suspect]
     Active Substance: RIFAXIMIN
     Route: 048
     Dates: start: 201906, end: 20190611
  3. XIFAXAN [Suspect]
     Active Substance: RIFAXIMIN
     Route: 048
     Dates: start: 20180910, end: 201906

REACTIONS (7)
  - Limb injury [Unknown]
  - Feeling abnormal [Recovering/Resolving]
  - Cellulitis [Unknown]
  - Loss of personal independence in daily activities [Not Recovered/Not Resolved]
  - Confusional state [Recovering/Resolving]
  - Disorientation [Recovering/Resolving]
  - Therapy cessation [Unknown]

NARRATIVE: CASE EVENT DATE: 201809
